FAERS Safety Report 10584246 (Version 1)
Quarter: 2014Q4

REPORT INFORMATION
  Report Type: Report from Study
  Country: FR (occurrence: FR)
  Receive Date: 20141114
  Receipt Date: 20141114
  Transmission Date: 20150529
  Serious: Yes (Other)
  Sender: FDA-Public Use
  Company Number: FR-ABBVIE-14P-056-1307285-00

PATIENT
  Age: 36 Year
  Sex: Female

DRUGS (4)
  1. PREZISTA [Suspect]
     Active Substance: DARUNAVIR ETHANOLATE
     Indication: ANTIRETROVIRAL THERAPY
     Dosage: TABLET/CAPSULE (UNKNOWN IF TAKEN AT CONCEPTION)
     Route: 048
     Dates: start: 20120116, end: 20140911
  2. EPIVIR [Suspect]
     Active Substance: LAMIVUDINE
     Indication: ANTIRETROVIRAL THERAPY
     Dosage: TABLET/CAPSULE (UNKNOWN IF TAKEN AT CONCEPTION)
     Route: 048
  3. NORVIR [Suspect]
     Active Substance: RITONAVIR
     Indication: ANTIRETROVIRAL THERAPY
     Dosage: UNKNOWN IF TAKEN AT CONCEPTION
     Route: 048
     Dates: start: 20120116, end: 20140911
  4. ZIAGEN [Suspect]
     Active Substance: ABACAVIR SULFATE
     Indication: ANTIRETROVIRAL THERAPY
     Dosage: TABLET/CAPSULE (UNKNOWN IF TAKEN AT CONCEPTION)
     Route: 048
     Dates: start: 20080902

REACTIONS (1)
  - Abortion spontaneous [Unknown]

NARRATIVE: CASE EVENT DATE: 20140720
